FAERS Safety Report 20240278 (Version 1)
Quarter: 2021Q4

REPORT INFORMATION
  Report Type: Spontaneous
  Country: US (occurrence: None)
  Receive Date: 20211227
  Receipt Date: 20211227
  Transmission Date: 20220304
  Serious: Yes (Hospitalization)
  Sender: FDA-Public Use
  Company Number: None

PATIENT
  Age: 73 Year
  Sex: Female

DRUGS (14)
  1. ENBREL [Suspect]
     Active Substance: ETANERCEPT
     Indication: Ankylosing spondylitis
     Dosage: FREQUENCY : WEEKLY;?
     Route: 058
     Dates: start: 20180911
  2. ALBUTEROL NEB 0.5% [Concomitant]
  3. AMLODIPINE TAB 5MG [Concomitant]
  4. ASPIRIN CHW 81MG [Concomitant]
  5. COLACE CAP 100MG [Concomitant]
  6. CRANBERRY CAP 250MG [Concomitant]
  7. HUMIRA PEN INJ 40MG/0.8 [Concomitant]
  8. HYDROCHLOROT TAB 25MG [Concomitant]
  9. KP VITAMIN D [Concomitant]
  10. POTASSIUM TAB 99MG [Concomitant]
  11. PROBIOTIC CAP [Concomitant]
  12. PULMICORT SUS 0.5MG/2 [Concomitant]
  13. VITAMIN C TAB 500MG [Concomitant]
  14. ZOCOR TAB 20MG [Concomitant]

REACTIONS (5)
  - Fall [None]
  - Joint dislocation [None]
  - Condition aggravated [None]
  - Joint stiffness [None]
  - Fatigue [None]

NARRATIVE: CASE EVENT DATE: 20211207
